FAERS Safety Report 11700023 (Version 1)
Quarter: 2015Q4

REPORT INFORMATION
  Report Type: Spontaneous
  Country: US (occurrence: None)
  Receive Date: 20151104
  Receipt Date: 20151104
  Transmission Date: 20160304
  Serious: Yes (Hospitalization)
  Sender: FDA-Public Use
  Company Number: None

PATIENT
  Age: 79 Year
  Sex: Male
  Weight: 79.8 kg

DRUGS (1)
  1. METHOCARBAMOL. [Suspect]
     Active Substance: METHOCARBAMOL
     Indication: MUSCLE SPASMS
     Route: 048
     Dates: start: 20150508, end: 20150512

REACTIONS (4)
  - Acute interstitial pneumonitis [None]
  - Hypoxia [None]
  - Alveolitis allergic [None]
  - Acute respiratory failure [None]

NARRATIVE: CASE EVENT DATE: 20150512
